FAERS Safety Report 5504944-9 (Version None)
Quarter: 2007Q4

REPORT INFORMATION
  Report Type: 
  Country: None (occurrence: None)
  Receive Date: 20071031
  Receipt Date: 20071015
  Transmission Date: 20080405
  Serious: No
  Sender: FDA-Public Use
  Company Number: 2007BI018236

PATIENT
  Age: 46 Year
  Sex: Female

DRUGS (5)
  1. AVONEX [Suspect]
     Indication: MULTIPLE SCLEROSIS
     Dosage: 30 UG;QW;IM
     Route: 030
     Dates: start: 20070806
  2. NEURONTIN [Concomitant]
  3. EFFEXOR XR [Concomitant]
  4. NEXIUM [Concomitant]
  5. LIPITOR [Concomitant]

REACTIONS (5)
  - DIZZINESS [None]
  - HYPOAESTHESIA ORAL [None]
  - LOSS OF CONSCIOUSNESS [None]
  - MUSCLE SPASMS [None]
  - PRESYNCOPE [None]
